FAERS Safety Report 14221677 (Version 2)
Quarter: 2017Q4

REPORT INFORMATION
  Report Type: Spontaneous
  Country: ZA (occurrence: ZA)
  Receive Date: 20171124
  Receipt Date: 20171204
  Transmission Date: 20180321
  Serious: Yes (Hospitalization, Other)
  Sender: FDA-Public Use
  Company Number: ZA-009507513-1711ZAF007495

PATIENT
  Age: 51 Year
  Sex: Male

DRUGS (2)
  1. PENICILLIN (UNSPECIFIED) [Suspect]
     Active Substance: PENICILLIN
     Dosage: UNK
  2. ESMERON [Suspect]
     Active Substance: ROCURONIUM BROMIDE
     Dosage: UNK UNK, ONCE
     Route: 042
     Dates: start: 20171114, end: 20171114

REACTIONS (3)
  - Restlessness [Unknown]
  - Drug hypersensitivity [Unknown]
  - Renal haemorrhage [Unknown]

NARRATIVE: CASE EVENT DATE: 20171114
